FAERS Safety Report 18257566 (Version 2)
Quarter: 2020Q3

REPORT INFORMATION
  Report Type: Spontaneous
  Country: IL (occurrence: IL)
  Receive Date: 20200911
  Receipt Date: 20200924
  Transmission Date: 20201103
  Serious: Yes (Other)
  Sender: FDA-Public Use
  Company Number: IL-SA-2020SA209996

PATIENT

DRUGS (5)
  1. EUTHYROX [Concomitant]
     Active Substance: LEVOTHYROXINE SODIUM
     Dosage: 350 UG, QW
  2. TRACLEER [Concomitant]
     Active Substance: BOSENTAN
     Dosage: 125 MG, BID
  3. ARAVA [Suspect]
     Active Substance: LEFLUNOMIDE
     Dosage: 20 MG
     Dates: start: 201912
  4. TRITACE [Concomitant]
     Active Substance: RAMIPRIL
     Indication: HYPERTENSION
     Dosage: 2.5 MG, QD
  5. LEVONORGESTREL. [Suspect]
     Active Substance: LEVONORGESTREL
     Dosage: UNK, FOR EIGHT YEARS

REACTIONS (11)
  - Gastrointestinal disorder [Unknown]
  - Dyspepsia [Unknown]
  - Renal impairment [Unknown]
  - Premenstrual syndrome [Unknown]
  - Emotional disorder [Unknown]
  - Nausea [Unknown]
  - Gastrointestinal haemorrhage [Unknown]
  - Scleroderma [Unknown]
  - Vaginal discharge [Unknown]
  - Dehydration [Unknown]
  - Diarrhoea [Unknown]
